FAERS Safety Report 23599703 (Version 1)
Quarter: 2024Q1

REPORT INFORMATION
  Report Type: Spontaneous
  Country: US (occurrence: US)
  Receive Date: 20240306
  Receipt Date: 20240306
  Transmission Date: 20240410
  Serious: No
  Sender: FDA-Public Use
  Company Number: US-JNJFOC-20240312098

PATIENT
  Age: 76 Year
  Sex: Male

DRUGS (4)
  1. ERLEADA [Suspect]
     Active Substance: APALUTAMIDE
     Indication: Product used for unknown indication
     Route: 048
  2. ORGOVYX [Suspect]
     Active Substance: RELUGOLIX
     Indication: Prostate cancer
     Route: 048
     Dates: start: 20211208
  3. ORGOVYX [Suspect]
     Active Substance: RELUGOLIX
     Route: 048
  4. DAROLUTAMIDE [Concomitant]
     Active Substance: DAROLUTAMIDE

REACTIONS (3)
  - Dizziness [Unknown]
  - Incorrect dosage administered [Recovered/Resolved]
  - Adverse event [Unknown]
